FAERS Safety Report 9856539 (Version 1)
Quarter: 2013Q4

REPORT INFORMATION
  Report Type: Spontaneous
  Country: US (occurrence: None)
  Receive Date: 20131226
  Receipt Date: 20131226
  Transmission Date: 20140711
  Serious: Yes (Other)
  Sender: FDA-Public Use
  Company Number: 201312073

PATIENT
  Age: 33 Year
  Sex: Male
  Weight: 77.57 kg

DRUGS (3)
  1. TESTOPEL [Suspect]
     Indication: BLOOD TESTOSTERONE DECREASED
     Dosage: PELLETS
     Route: 058
     Dates: start: 20130823
  2. AMBIEN [Concomitant]
  3. FLONASE [Concomitant]

REACTIONS (1)
  - Eosinophilia [None]
